FAERS Safety Report 16474607 (Version 2)
Quarter: 2019Q4

REPORT INFORMATION
  Report Type: Report from Study
  Country: DE (occurrence: AT)
  Receive Date: 20190625
  Receipt Date: 20191104
  Transmission Date: 20200122
  Serious: Yes (Life-Threatening, Hospitalization)
  Sender: FDA-Public Use
  Company Number: AT-BAYER-2019-115677

PATIENT
  Age: 37 Year
  Sex: Female
  Weight: 68 kg

DRUGS (5)
  1. MIRENA [Suspect]
     Active Substance: LEVONORGESTREL
     Indication: CONTRACEPTION
     Dosage: 20 MCG/24HR, CONT
     Route: 015
     Dates: start: 20180312, end: 20180323
  2. MIRENA [Suspect]
     Active Substance: LEVONORGESTREL
     Indication: CONTRACEPTION
  3. ARTHROTEC [Concomitant]
     Active Substance: DICLOFENAC SODIUM\MISOPROSTOL
     Dosage: UNK
     Dates: start: 20180312, end: 20180312
  4. NOVOTHYRAL [Concomitant]
     Active Substance: LEVOTHYROXINE SODIUM\LIOTHYRONINE SODIUM
     Dosage: UNK
  5. BETAISODONA [Concomitant]
     Active Substance: POVIDONE-IODINE
     Dosage: UNK
     Route: 061
     Dates: start: 20180312, end: 20180312

REACTIONS (11)
  - Capillary leak syndrome [None]
  - Toxic shock syndrome streptococcal [Recovering/Resolving]
  - Rash [None]
  - Coagulopathy [None]
  - Product contamination microbial [Recovering/Resolving]
  - Pyrexia [Recovering/Resolving]
  - Acute kidney injury [None]
  - Influenza like illness [Recovering/Resolving]
  - Complication of device insertion [None]
  - Pulmonary oedema [None]
  - Diarrhoea [None]

NARRATIVE: CASE EVENT DATE: 201803
